FAERS Safety Report 16069133 (Version 2)
Quarter: 2019Q2

REPORT INFORMATION
  Report Type: Report from Study
  Country: US (occurrence: US)
  Receive Date: 20190313
  Receipt Date: 20190403
  Transmission Date: 20190711
  Serious: Yes (Life-Threatening, Other)
  Sender: FDA-Public Use
  Company Number: PHHY2018US201285

PATIENT
  Age: 13 Year
  Sex: Female

DRUGS (1)
  1. KYMRIAH [Suspect]
     Active Substance: TISAGENLECLEUCEL
     Indication: B-CELL TYPE ACUTE LEUKAEMIA
     Dosage: UNK, ONCE/SINGLE
     Route: 041
     Dates: start: 2018

REACTIONS (16)
  - Neurotoxicity [Recovered/Resolved]
  - Viral sinusitis [Unknown]
  - Cytokine release syndrome [Recovered/Resolved]
  - Hypoxia [Unknown]
  - Pyrexia [Unknown]
  - Tremor [Unknown]
  - Hypogammaglobulinaemia [Unknown]
  - Cytopenia [Unknown]
  - Headache [Unknown]
  - Viral upper respiratory tract infection [Unknown]
  - Neutrophil count decreased [Recovered/Resolved]
  - Hypotension [Unknown]
  - Treatment failure [Unknown]
  - Depressed level of consciousness [Unknown]
  - Asthenia [Unknown]
  - Platelet count decreased [Recovered/Resolved]
